FAERS Safety Report 7780881-4 (Version None)
Quarter: 2011Q3

REPORT INFORMATION
  Report Type: 
  Country: None (occurrence: None)
  Receive Date: 20110927
  Receipt Date: 20110915
  Transmission Date: 20111222
  Serious: Yes (Other)
  Sender: FDA-Public Use
  Company Number: JP-PFIZER INC-2011227161

PATIENT
  Age: 81 Year
  Sex: Female
  Weight: 52 kg

DRUGS (3)
  1. RHEUMATREX [Suspect]
     Route: 048
  2. CELECOXIB [Suspect]
     Indication: RHEUMATOID ARTHRITIS
     Dosage: 200 MG, DAILY
     Route: 048
     Dates: start: 20080401, end: 20101228
  3. INDOMETACIN [Concomitant]
     Indication: MUSCULOSKELETAL PAIN

REACTIONS (1)
  - INTERSTITIAL LUNG DISEASE [None]
